FAERS Safety Report 6370947-8 (Version None)
Quarter: 2009Q3

REPORT INFORMATION
  Report Type: 
  Country: None (occurrence: None)
  Receive Date: 20090918
  Receipt Date: 20090902
  Transmission Date: 20100115
  Serious: Yes (Other)
  Sender: FDA-Public Use
  Company Number: 2009BI017615

PATIENT
  Age: 53 Year
  Sex: Male

DRUGS (5)
  1. ZEVALIN [Suspect]
     Indication: EXTRANODAL MARGINAL ZONE B-CELL LYMPHOMA (MALT TYPE) STAGE II
     Dosage: 1362 MBQ; 1X; IV
     Route: 042
     Dates: start: 20081202, end: 20081209
  2. RITUXIMAB [Concomitant]
  3. LOXONIN [Concomitant]
  4. POLARAMINE [Concomitant]
  5. FLUDEOXYGLUCOSE (18F) [Concomitant]

REACTIONS (1)
  - BONE MARROW FAILURE [None]
